FAERS Safety Report 5198431-8 (Version None)
Quarter: 2007Q1

REPORT INFORMATION
  Report Type: 
  Country: None (occurrence: None)
  Receive Date: 20070104
  Receipt Date: 20061227
  Transmission Date: 20070707
  Serious: Yes (Hospitalization)
  Sender: FDA-Public Use
  Company Number: 2006AP05835

PATIENT
  Age: 27728 Day
  Sex: Female
  Weight: 50.2 kg

DRUGS (11)
  1. IRESSA [Suspect]
     Indication: NON-SMALL CELL LUNG CANCER
     Route: 048
     Dates: start: 20061004, end: 20061203
  2. IRESSA [Suspect]
     Route: 048
     Dates: start: 20061205, end: 20061207
  3. BLOPRESS [Concomitant]
     Indication: HYPERTENSION
     Route: 048
     Dates: start: 19900101
  4. RHYTHMY [Concomitant]
     Indication: INSOMNIA
     Route: 048
     Dates: start: 20060908, end: 20061007
  5. PURSENNID [Concomitant]
     Indication: CONSTIPATION
     Route: 048
     Dates: start: 20060910, end: 20061017
  6. PURSENNID [Concomitant]
     Route: 048
     Dates: start: 20061120
  7. LEVOFLOXACIN [Concomitant]
     Indication: PYREXIA
     Route: 048
     Dates: start: 20060929, end: 20060930
  8. CALONAL [Concomitant]
     Indication: PYREXIA
     Route: 048
     Dates: start: 20061002, end: 20061002
  9. MYSLEE [Concomitant]
     Indication: INSOMNIA
     Route: 048
     Dates: start: 20061204
  10. CEFAMEZIN ALPHA [Concomitant]
     Indication: PROPHYLAXIS
     Route: 042
     Dates: start: 20061204, end: 20061206
  11. HEPAFLUSH [Concomitant]
     Indication: PROPHYLAXIS
     Route: 042
     Dates: start: 20061207

REACTIONS (12)
  - DRY SKIN [None]
  - DYSPNOEA EXERTIONAL [None]
  - FACE OEDEMA [None]
  - GASTRIC CANCER [None]
  - HYDRONEPHROSIS [None]
  - INSOMNIA [None]
  - LIMB INJURY [None]
  - LYMPHADENOPATHY [None]
  - NAUSEA [None]
  - OBSTRUCTIVE UROPATHY [None]
  - RENAL FAILURE ACUTE [None]
  - TONGUE DISORDER [None]
